FAERS Safety Report 24727848 (Version 2)
Quarter: 2025Q1

REPORT INFORMATION
  Report Type: Report from Study
  Country: GB (occurrence: GB)
  Receive Date: 20241212
  Receipt Date: 20250210
  Transmission Date: 20250409
  Serious: Yes (Other)
  Sender: BAYER HEALTHCARE PHARMACEUTICALS INC.
  Company Number: GB-BAYER-2024A164888

PATIENT
  Age: 77 Year
  Sex: Male

DRUGS (3)
  1. NUBEQA [Suspect]
     Active Substance: DAROLUTAMIDE
     Indication: Hormone-refractory prostate cancer
     Dosage: 600 MG, BID
     Dates: start: 20240911, end: 2024
  2. NUBEQA [Suspect]
     Active Substance: DAROLUTAMIDE
     Indication: Hormone-refractory prostate cancer
     Dates: start: 2024
  3. NUBEQA [Suspect]
     Active Substance: DAROLUTAMIDE
     Indication: Hormone-refractory prostate cancer
     Dosage: 300 MG, BID
     Dates: start: 20240911

REACTIONS (6)
  - Blood pressure fluctuation [Not Recovered/Not Resolved]
  - Pain [Recovered/Resolved]
  - Fatigue [Recovering/Resolving]
  - Blood urea abnormal [Unknown]
  - Blood electrolytes abnormal [None]
  - Full blood count abnormal [Unknown]

NARRATIVE: CASE EVENT DATE: 20250110
